FAERS Safety Report 4626784-5 (Version None)
Quarter: 2005Q2

REPORT INFORMATION
  Report Type: 
  Country: None (occurrence: None)
  Receive Date: 20050405
  Receipt Date: 20050329
  Transmission Date: 20051028
  Serious: Yes (Hospitalization)
  Sender: FDA-Public Use
  Company Number: US-KINGPHARMUSA00001-K200500432

PATIENT
  Age: 84 Year
  Sex: Male

DRUGS (2)
  1. ALTACE [Suspect]
     Route: 048
     Dates: end: 20050214
  2. TEGRETOL [Suspect]
     Route: 048
     Dates: start: 20041201, end: 20041230

REACTIONS (8)
  - DEHYDRATION [None]
  - DERMATITIS EXFOLIATIVE [None]
  - DRUG ERUPTION [None]
  - DRUG HYPERSENSITIVITY [None]
  - FOLLICULITIS [None]
  - LUNG INFECTION [None]
  - PRURITUS [None]
  - PSEUDO LYMPHOMA [None]
